FAERS Safety Report 4728140-8 (Version None)
Quarter: 2005Q3

REPORT INFORMATION
  Report Type: 
  Country: None (occurrence: None)
  Receive Date: 20050728
  Receipt Date: 20050728
  Transmission Date: 20060218
  Serious: Yes (Life-Threatening)
  Sender: FDA-Public Use
  Company Number: None

PATIENT
  Age: 18 Year
  Sex: Female
  Weight: 90.7194 kg

DRUGS (1)
  1. SEROQUEL [Suspect]
     Dosage: 3
     Dates: start: 20050622, end: 20050707

REACTIONS (3)
  - FEELING ABNORMAL [None]
  - HEART RATE INCREASED [None]
  - VISION BLURRED [None]
